FAERS Safety Report 7221010-5 (Version None)
Quarter: 2011Q1

REPORT INFORMATION
  Report Type: 
  Country: None (occurrence: None)
  Receive Date: 20110112
  Receipt Date: 20110107
  Transmission Date: 20110831
  Serious: Yes (Hospitalization)
  Sender: FDA-Public Use
  Company Number: NL-BRISTOL-MYERS SQUIBB COMPANY-15479413

PATIENT
  Age: 56 Year
  Sex: Female

DRUGS (9)
  1. METHOTREXATE [Concomitant]
  2. AMLODIPINE [Concomitant]
  3. PREDNISONE [Concomitant]
  4. PARACETAMOL [Concomitant]
  5. HYDROCHLOROTHIAZIDE [Concomitant]
  6. ORENCIA [Suspect]
     Dates: start: 20101104
  7. ALENDRONIC ACID [Concomitant]
  8. METOPROLOL [Concomitant]
  9. OMEPRAZOLE [Concomitant]

REACTIONS (1)
  - LARYNGEAL ULCERATION [None]
